FAERS Safety Report 6104387-3 (Version None)
Quarter: 2009Q1

REPORT INFORMATION
  Report Type: 
  Country: None (occurrence: None)
  Receive Date: 20090305
  Receipt Date: 20090218
  Transmission Date: 20090719
  Serious: Yes (Hospitalization)
  Sender: FDA-Public Use
  Company Number: CH-GENENTECH-277469

PATIENT
  Sex: Female

DRUGS (4)
  1. AVASTIN [Suspect]
     Indication: COLON CANCER
     Dosage: UNK
     Route: 042
     Dates: start: 20071101, end: 20081101
  2. IRINOTECAN HCL [Concomitant]
     Indication: COLON CANCER
     Dosage: UNK
     Dates: start: 20071101, end: 20080201
  3. VITAMINS [Concomitant]
     Indication: DRUG USE FOR UNKNOWN INDICATION
  4. ANTIHYPERTENSIVE AGENTS [Concomitant]
     Indication: DRUG USE FOR UNKNOWN INDICATION

REACTIONS (3)
  - ENCEPHALOPATHY [None]
  - HYPERTENSION [None]
  - MARCHIAFAVA-BIGNAMI DISEASE [None]
